FAERS Safety Report 7329307-5 (Version None)
Quarter: 2011Q1

REPORT INFORMATION
  Report Type: 
  Country: None (occurrence: None)
  Receive Date: 20110303
  Receipt Date: 20110223
  Transmission Date: 20110831
  Serious: Yes (Other)
  Sender: FDA-Public Use
  Company Number: Z0007777A

PATIENT
  Sex: Male
  Weight: 78 kg

DRUGS (2)
  1. PAZOPANIB [Suspect]
     Indication: RENAL CELL CARCINOMA
     Dosage: 800MG PER DAY
     Route: 048
     Dates: start: 20091223
  2. BLOOD TRANSFUSION [Concomitant]
     Dosage: 2UNIT SINGLE DOSE
     Route: 042
     Dates: start: 20110111, end: 20110111

REACTIONS (1)
  - ANAEMIA [None]
